FAERS Safety Report 18571028 (Version 1)
Quarter: 2020Q4

REPORT INFORMATION
  Report Type: Spontaneous
  Country: US (occurrence: US)
  Receive Date: 20201202
  Receipt Date: 20201202
  Transmission Date: 20210114
  Serious: No
  Sender: FDA-Public Use
  Company Number: US-NOVEN PHARMACEUTICALS, INC.-2020US005060

PATIENT
  Sex: Female

DRUGS (3)
  1. MINIVELLE [Suspect]
     Active Substance: ESTRADIOL
     Indication: MENOPAUSAL SYMPTOMS
     Dosage: 0.05 MG
     Route: 062
  2. MINIVELLE [Suspect]
     Active Substance: ESTRADIOL
     Dosage: 0.075 MG
     Route: 062
     Dates: end: 201910
  3. MINIVELLE [Suspect]
     Active Substance: ESTRADIOL
     Dosage: 0.075 MG
     Route: 062

REACTIONS (3)
  - Product quality issue [Not Recovered/Not Resolved]
  - No adverse event [Unknown]
  - Intentional product use issue [Not Recovered/Not Resolved]
